FAERS Safety Report 23617337 (Version 1)
Quarter: 2024Q1

REPORT INFORMATION
  Report Type: Spontaneous
  Country: RU (occurrence: None)
  Receive Date: 20240311
  Receipt Date: 20240311
  Transmission Date: 20240410
  Serious: Yes (Other)
  Sender: FDA-Public Use
  Company Number: RU-ROCHE-3518345

PATIENT
  Age: 73 Year
  Sex: Male

DRUGS (4)
  1. ATEZOLIZUMAB [Suspect]
     Active Substance: ATEZOLIZUMAB
     Indication: Sarcomatoid carcinoma
     Dosage: ON DAY 1, AND SUBSEQUENT DOSE OF TAKEN ON 20/FEB/2023.
     Route: 041
     Dates: start: 20230130
  2. BEVACIZUMAB [Suspect]
     Active Substance: BEVACIZUMAB
     Indication: Sarcomatoid carcinoma
     Dosage: ON DAY 1, AND SUBSEQUENT DOSE OF TAKEN ON 20/FEB/2023.
     Route: 041
     Dates: start: 20230130
  3. PACLITAXEL [Suspect]
     Active Substance: PACLITAXEL
     Indication: Sarcomatoid carcinoma
     Dosage: ON DAY 1, AND SUBSEQUENT DOSE OF TAKEN ON 20/FEB/2023.
     Route: 041
     Dates: start: 20230130
  4. CARBOPLATIN [Suspect]
     Active Substance: CARBOPLATIN
     Indication: Sarcomatoid carcinoma
     Dosage: ON DAY 1, AND SUBSEQUENT DOSE OF TAKEN ON 20/FEB/2023.
     Route: 041
     Dates: start: 20230130

REACTIONS (3)
  - Neutropenia [Unknown]
  - Alopecia [Unknown]
  - Asthenia [Unknown]
